FAERS Safety Report 7552403-4 (Version None)
Quarter: 2011Q2

REPORT INFORMATION
  Report Type: 
  Country: None (occurrence: None)
  Receive Date: 20110616
  Receipt Date: 20110223
  Transmission Date: 20111010
  Serious: Yes (Other)
  Sender: FDA-Public Use
  Company Number: PHHY2010IT86774

PATIENT
  Sex: Female

DRUGS (4)
  1. VALSARTAN AND HYDROCHLOROTHIAZIDE [Suspect]
     Indication: HYPERTENSION
     Dosage: 80 MG, DAILY
     Route: 048
     Dates: start: 20051214, end: 20101214
  2. BISOPROLOL FUMARATE [Suspect]
     Dosage: 5 MG DOSAGE
     Dates: start: 20051214
  3. RISPERDAL [Suspect]
     Dosage: 2 MG DAILY
     Route: 048
     Dates: start: 20101212
  4. LORAZEPAM [Concomitant]
     Dosage: UNK
     Dates: end: 20101216

REACTIONS (4)
  - HYPOTENSION [None]
  - SYNCOPE [None]
  - FALL [None]
  - INJURY [None]
